FAERS Safety Report 18191446 (Version 1)
Quarter: 2020Q3

REPORT INFORMATION
  Report Type: Spontaneous
  Country: US (occurrence: US)
  Receive Date: 20200824
  Receipt Date: 20200824
  Transmission Date: 20201103
  Serious: No
  Sender: FDA-Public Use
  Company Number: US-SA-2020SA223831

PATIENT

DRUGS (1)
  1. DUPIXENT [Suspect]
     Active Substance: DUPILUMAB
     Indication: ASTHMA
     Dosage: 300 MG, QOW
     Route: 058

REACTIONS (8)
  - Sleep disorder [Unknown]
  - Ear discomfort [Unknown]
  - Sinusitis [Unknown]
  - Nasal polyps [Unknown]
  - Pain [Unknown]
  - Product use issue [Unknown]
  - Discomfort [Unknown]
  - Surgery [Unknown]

NARRATIVE: CASE EVENT DATE: 202007
